FAERS Safety Report 6923870-1 (Version None)
Quarter: 2010Q3

REPORT INFORMATION
  Report Type: 
  Country: None (occurrence: None)
  Receive Date: 20100813
  Receipt Date: 20100215
  Transmission Date: 20110219
  Serious: No
  Sender: FDA-Public Use
  Company Number: US-BRISTOL-MYERS SQUIBB COMPANY-14964639

PATIENT
  Age: 38 Year
  Sex: Male

DRUGS (4)
  1. REYATAZ [Suspect]
     Dosage: FOR 3-74 YRS
     Route: 048
     Dates: start: 20070817
  2. VIDEX [Suspect]
  3. RITONAVIR [Suspect]
  4. TENOFOVIR DISOPROXIL FUMARATE [Suspect]

REACTIONS (1)
  - NEPHROLITHIASIS [None]
